FAERS Safety Report 18201871 (Version 1)
Quarter: 2020Q3

REPORT INFORMATION
  Report Type: Spontaneous
  Country: US (occurrence: US)
  Receive Date: 20200827
  Receipt Date: 20200827
  Transmission Date: 20201103
  Serious: Yes (Hospitalization)
  Sender: FDA-Public Use
  Company Number: None

PATIENT
  Age: 64 Year
  Sex: Female
  Weight: 107.1 kg

DRUGS (2)
  1. GEMCITABINE HYDROCHLORIDE. [Suspect]
     Active Substance: GEMCITABINE HYDROCHLORIDE
     Dates: end: 20200805
  2. CISPLATIN. [Suspect]
     Active Substance: CISPLATIN
     Dates: end: 20200805

REACTIONS (5)
  - Blood creatine increased [None]
  - Presyncope [None]
  - Dehydration [None]
  - Glomerular filtration rate decreased [None]
  - Thrombocytopenia [None]

NARRATIVE: CASE EVENT DATE: 20200814
